FAERS Safety Report 19942422 (Version 1)
Quarter: 2021Q4

REPORT INFORMATION
  Report Type: Spontaneous
  Country: CN (occurrence: CN)
  Receive Date: 20211012
  Receipt Date: 20211012
  Transmission Date: 20220303
  Serious: Yes (Life-Threatening)
  Sender: FDA-Public Use
  Company Number: CN-ROCHE-2930970

PATIENT
  Age: 89 Year
  Sex: Male
  Weight: 52.5 kg

DRUGS (13)
  1. MABTHERA [Suspect]
     Active Substance: RITUXIMAB
     Indication: Lymphoma
     Route: 058
     Dates: start: 20210928, end: 20210928
  2. SODIUM CHLORIDE [Concomitant]
     Active Substance: SODIUM CHLORIDE
     Dosage: S21080304: SOLVENT FOR RITUXIMAB
     Dates: start: 20210928, end: 20210928
  3. SODIUM CHLORIDE [Concomitant]
     Active Substance: SODIUM CHLORIDE
     Dosage: S20121203: SOLVENT FOR YA DAN ZI YOU RU ZHU SHE YE
     Route: 041
     Dates: start: 20210922, end: 20210929
  4. SODIUM CHLORIDE [Concomitant]
     Active Substance: SODIUM CHLORIDE
     Dosage: Q21070103: SOLVENT FOR ESOMEPRAZOLE SODIUM FOR INJECTION
     Route: 041
     Dates: start: 20210927, end: 20210929
  5. SODIUM CHLORIDE [Concomitant]
     Active Substance: SODIUM CHLORIDE
     Dosage: Q21070103: SOLVENT FOR DEXAMETHASONE SODIUM PHOSPHATE INJECTION AND TROPISETRON HYDROCHLORIDE INJECT
     Route: 041
     Dates: start: 20210928, end: 20210928
  6. YA DAN ZI YOU RU ZHU SHE YE [Concomitant]
     Indication: Lymphoma
     Route: 041
     Dates: start: 20210922, end: 20210929
  7. ESOMEPRAZOLE SODIUM [Concomitant]
     Active Substance: ESOMEPRAZOLE SODIUM
     Indication: Lymphoma
     Route: 041
     Dates: start: 20210927, end: 20210929
  8. SPIRONOLACTONE [Concomitant]
     Active Substance: SPIRONOLACTONE
     Indication: Hypertension
     Route: 048
     Dates: start: 20210923, end: 20210929
  9. POTASSIUM CHLORIDE [Concomitant]
     Active Substance: POTASSIUM CHLORIDE
     Indication: Lymphoma
     Route: 048
     Dates: start: 20210923, end: 20210929
  10. ZHEN YUAN PIAN [Concomitant]
     Indication: Lymphoma
     Route: 048
     Dates: start: 20210926, end: 20210929
  11. DIPHENHYDRAMINE HYDROCHLORIDE [Concomitant]
     Active Substance: DIPHENHYDRAMINE HYDROCHLORIDE
     Indication: Lymphoma
     Route: 030
     Dates: start: 20210928, end: 20210928
  12. DEXAMETHASONE SODIUM PHOSPHATE [Concomitant]
     Active Substance: DEXAMETHASONE SODIUM PHOSPHATE
     Indication: Lymphoma
     Route: 041
     Dates: start: 20210928, end: 20210928
  13. TROPISETRON HYDROCHLORIDE [Concomitant]
     Active Substance: TROPISETRON HYDROCHLORIDE
     Indication: Lymphoma
     Route: 041
     Dates: start: 20210928, end: 20210928

REACTIONS (7)
  - Chills [Recovered/Resolved]
  - Body temperature increased [Recovered/Resolved]
  - Respiration abnormal [Recovered/Resolved]
  - Heart rate increased [Recovered/Resolved]
  - Labile blood pressure [Recovered/Resolved]
  - Oxygen saturation decreased [Recovered/Resolved]
  - Flushing [Unknown]

NARRATIVE: CASE EVENT DATE: 20210928
